FAERS Safety Report 12607583 (Version 1)
Quarter: 2016Q3

REPORT INFORMATION
  Report Type: Spontaneous
  Country: JP (occurrence: JP)
  Receive Date: 20160729
  Receipt Date: 20160729
  Transmission Date: 20161109
  Serious: Yes (Other)
  Sender: FDA-Public Use
  Company Number: PHHY2012JP141642

PATIENT
  Age: 46 Year
  Sex: Female
  Weight: 51 kg

DRUGS (8)
  1. AMLODIN [Interacting]
     Active Substance: AMLODIPINE BESYLATE
     Dosage: 7.5 MG,
     Route: 048
     Dates: start: 20121108, end: 20121206
  2. AMLODIN [Interacting]
     Active Substance: AMLODIPINE BESYLATE
     Dosage: 2.5 MG,
     Route: 048
     Dates: start: 20130207, end: 20130418
  3. PAZOPANIB [Interacting]
     Active Substance: PAZOPANIB
     Dosage: 600 MG, QD
     Route: 048
     Dates: start: 20130425
  4. PAZOPANIB [Suspect]
     Active Substance: PAZOPANIB
     Indication: LEIOMYOSARCOMA RECURRENT
     Dosage: 800 MG, QD
     Route: 048
     Dates: start: 20121102, end: 20121206
  5. PAZOPANIB [Interacting]
     Active Substance: PAZOPANIB
     Dosage: 400 MG, QD
     Route: 048
     Dates: start: 20130509, end: 20130718
  6. PAZOPANIB [Interacting]
     Active Substance: PAZOPANIB
     Dosage: 600 MG, QD
     Route: 048
     Dates: start: 20121213, end: 20130418
  7. AMLODIN [Interacting]
     Active Substance: AMLODIPINE BESYLATE
     Indication: HYPERTENSION
     Dosage: 5 MG,
     Route: 048
     Dates: start: 20121103
  8. AMLODIN [Interacting]
     Active Substance: AMLODIPINE BESYLATE
     Dosage: 5 MG,
     Route: 048
     Dates: start: 20121213

REACTIONS (9)
  - Headache [Unknown]
  - Platelet count decreased [Unknown]
  - Platelet count decreased [Recovered/Resolved]
  - Neutrophil count decreased [Recovered/Resolved]
  - Hypertension [Recovering/Resolving]
  - Neutrophil count decreased [Recovered/Resolved]
  - Drug interaction [Unknown]
  - Neutrophil count decreased [Recovered/Resolved]
  - Malignant neoplasm progression [Unknown]

NARRATIVE: CASE EVENT DATE: 20121103
